FAERS Safety Report 4543025-8 (Version None)
Quarter: 2005Q1

REPORT INFORMATION
  Report Type: 
  Country: None (occurrence: None)
  Receive Date: 20050103
  Receipt Date: 20041222
  Transmission Date: 20050727
  Serious: Yes (Hospitalization)
  Sender: FDA-Public Use
  Company Number: JP-JNJFOC-20041006963

PATIENT
  Sex: Male
  Weight: 57 kg

DRUGS (17)
  1. REMICADE [Suspect]
     Route: 042
  2. REMICADE [Suspect]
     Route: 042
  3. REMICADE [Suspect]
     Route: 042
  4. REMICADE [Suspect]
     Indication: RHEUMATOID ARTHRITIS
     Route: 042
  5. RHEUMATREX [Suspect]
     Route: 049
  6. RHEUMATREX [Suspect]
     Route: 049
  7. RHEUMATREX [Suspect]
     Indication: RHEUMATOID ARTHRITIS
     Route: 049
  8. PREDNISOLONE [Suspect]
     Indication: RHEUMATOID ARTHRITIS
     Route: 049
  9. AZULFIDINE [Suspect]
     Indication: RHEUMATOID ARTHRITIS
     Route: 049
  10. INH [Concomitant]
     Route: 049
  11. LOXONINE [Concomitant]
     Indication: RHEUMATOID ARTHRITIS
  12. VOLTAREN [Concomitant]
  13. VOLTAREN [Concomitant]
     Indication: RHEUMATOID ARTHRITIS
  14. FOLIAMIN [Concomitant]
     Route: 049
  15. BONALON [Concomitant]
     Route: 049
  16. FAMOTIDINE [Concomitant]
     Route: 049
  17. MUCOSTA [Concomitant]
     Route: 049

REACTIONS (7)
  - ARTHRALGIA [None]
  - ATYPICAL MYCOBACTERIAL INFECTION [None]
  - COUGH [None]
  - DERMATITIS BULLOUS [None]
  - HERPES ZOSTER [None]
  - IMMUNOSUPPRESSION [None]
  - MUSCULOSKELETAL STIFFNESS [None]
